FAERS Safety Report 23953871 (Version 1)
Quarter: 2024Q2

REPORT INFORMATION
  Report Type: Spontaneous
  Country: GB (occurrence: GB)
  Receive Date: 20240609
  Receipt Date: 20240609
  Transmission Date: 20240716
  Serious: Yes (Other)
  Sender: FDA-Public Use
  Company Number: None

PATIENT
  Age: 67 Year
  Sex: Male
  Weight: 86 kg

DRUGS (26)
  1. FINASTERIDE [Suspect]
     Active Substance: FINASTERIDE
     Indication: Benign prostatic hyperplasia
     Dates: start: 20240415, end: 20240528
  2. ACIDEX ADVANCE [Concomitant]
     Indication: Ill-defined disorder
     Dosage: TAKE TWO 5MLS FOUR TIMES A DAY WHEN NEEDED.
     Dates: start: 20240319, end: 20240416
  3. AMOXICILLIN [Concomitant]
     Active Substance: AMOXICILLIN
     Indication: Ill-defined disorder
     Dates: start: 20240327, end: 20240403
  4. OTOMIZE [Concomitant]
     Indication: Ill-defined disorder
     Dosage: APPLY TOPICALLY TO BE TAKEN TWICE DAILY, TPP YC - PLEASE RECLASSIFY
     Route: 061
     Dates: start: 20240327, end: 20240403
  5. NEBIDO [Concomitant]
     Active Substance: TESTOSTERONE UNDECANOATE
     Indication: Ill-defined disorder
     Dosage: USE AS DIRECTED
     Dates: start: 20240205
  6. TERBINAFINE [Concomitant]
     Active Substance: TERBINAFINE
     Indication: Fungal skin infection
     Dates: start: 20240508, end: 20240518
  7. ASPIRIN [Concomitant]
     Active Substance: ASPIRIN
     Indication: Product used for unknown indication
     Dosage: EACH MORNING
     Dates: start: 20240205
  8. AZITHROMYCIN [Concomitant]
     Active Substance: AZITHROMYCIN
     Indication: Product used for unknown indication
     Dosage: TAKE ONE DAILY ONLY TUESDAY, THURSDAY AND SATURDAY
     Dates: start: 20240205
  9. BISOPROLOL [Concomitant]
     Active Substance: BISOPROLOL\BISOPROLOL FUMARATE
     Indication: Product used for unknown indication
     Dosage: TPP YC - PLEASE RECLASSIFY
     Dates: start: 20240205
  10. COTRIMOXAZOLE [Concomitant]
     Active Substance: SULFAMETHOXAZOLE\TRIMETHOPRIM
     Indication: Product used for unknown indication
     Dosage: TAKE ONE TWICE DAILY ONLY ON MONDAY,WEDNESDAY A...TPP YC - PLEASE RECLASSIFY
     Dates: start: 20240205
  11. EVACAL [Concomitant]
     Indication: Product used for unknown indication
     Dates: start: 20240205
  12. FLUTICASONE PROPIONATE [Concomitant]
     Active Substance: FLUTICASONE PROPIONATE
     Indication: Product used for unknown indication
     Dosage: IN EACH NOSTRIL
     Route: 045
     Dates: start: 20240205
  13. HYPROMELLOSES [Concomitant]
     Active Substance: HYPROMELLOSES
     Indication: Product used for unknown indication
     Dosage: USE AS DIRECTED
     Dates: start: 20240205
  14. LANSOPRAZOLE [Concomitant]
     Active Substance: LANSOPRAZOLE
     Indication: Product used for unknown indication
     Dosage: TAKE ONE  OR TWO CAPSULE ONCE DAILY
     Dates: start: 20240205
  15. ACETAMINOPHEN [Concomitant]
     Active Substance: ACETAMINOPHEN
     Indication: Ill-defined disorder
     Dosage: TAKE 1 OR 2 4 TIMES/DAY WHEN REQUIRED FOR PAIN, TPP YC - PLEASE RECLASSIFY
     Dates: start: 20240205
  16. PRAVASTATIN [Concomitant]
     Active Substance: PRAVASTATIN
     Indication: Product used for unknown indication
     Dosage: AT NIGHT, TPP YC - PLEASE RECLASSIFY
     Dates: start: 20240205
  17. PREGABALIN [Concomitant]
     Active Substance: PREGABALIN
     Indication: Product used for unknown indication
     Dosage: TAKE ONE DAILY, TPP YC - PLEASE RECLASSIFY
     Dates: start: 20240205
  18. RAMIPRIL [Concomitant]
     Active Substance: RAMIPRIL
     Indication: Product used for unknown indication
     Dosage: TAKE ONE DAILY, TPP YC - PLEASE RECLASSIFY
     Dates: start: 20240205
  19. ALBUTEROL [Concomitant]
     Active Substance: ALBUTEROL
     Indication: Product used for unknown indication
     Route: 055
     Dates: start: 20240205
  20. OXYCODONE HYDROCHLORIDE [Concomitant]
     Active Substance: OXYCODONE HYDROCHLORIDE
     Indication: Product used for unknown indication
     Dosage: AS DIRECTED, TPP YC - PLEASE RECLASSIFY
     Dates: start: 20240205
  21. TADALAFIL [Concomitant]
     Active Substance: TADALAFIL
     Indication: Product used for unknown indication
     Dosage: USE AS DIRECTED
     Dates: start: 20240205
  22. TAMSULOSIN HYDROCHLORIDE [Concomitant]
     Active Substance: TAMSULOSIN HYDROCHLORIDE
     Indication: Product used for unknown indication
     Dosage: IN THE EVENING
     Dates: start: 20240205, end: 20240415
  23. VITAMINS [Concomitant]
     Active Substance: VITAMINS
     Indication: Product used for unknown indication
     Dates: start: 20240205
  24. XAILIN NIGHT [Concomitant]
     Indication: Product used for unknown indication
     Dosage: USE AS DIRECTED 1CM LEFT EYE AT NIGHT, TPP YC - PLEASE RECLASSIFY
     Dates: start: 20240219
  25. RANITIDINE HYDROCHLORIDE [Concomitant]
     Active Substance: RANITIDINE HYDROCHLORIDE
     Indication: Product used for unknown indication
     Dosage: 2X5ML SPOON 4 TIMES/DAY AS NEEDED
     Dates: start: 20240220
  26. ALFUZOSIN [Concomitant]
     Active Substance: ALFUZOSIN
     Indication: Product used for unknown indication
     Dosage: TPP YC - PLEASE RECLASSIFY
     Dates: start: 20240415

REACTIONS (2)
  - Erectile dysfunction [Recovered/Resolved]
  - Back pain [Unknown]

NARRATIVE: CASE EVENT DATE: 20240501
